FAERS Safety Report 6315457-9 (Version None)
Quarter: 2009Q3

REPORT INFORMATION
  Report Type: 
  Country: None (occurrence: None)
  Receive Date: 20090819
  Receipt Date: 20090806
  Transmission Date: 20100115
  Serious: Yes (Other)
  Sender: FDA-Public Use
  Company Number: US-PFIZER INC-2009253177

PATIENT
  Sex: Male
  Weight: 86.168 kg

DRUGS (3)
  1. LYRICA [Suspect]
     Indication: FIBROMYALGIA
     Dosage: UNK
     Route: 048
     Dates: start: 20081001, end: 20090701
  2. LYRICA [Suspect]
     Indication: PAIN IN EXTREMITY
  3. ZIAC [Concomitant]
     Dosage: UNK
     Route: 048

REACTIONS (8)
  - DIZZINESS [None]
  - DYSPNOEA [None]
  - EYE SWELLING [None]
  - PAIN IN EXTREMITY [None]
  - PHARYNGEAL OEDEMA [None]
  - SWELLING [None]
  - SWELLING FACE [None]
  - SWOLLEN TONGUE [None]
